FAERS Safety Report 9597891 (Version 1)
Quarter: 2013Q4

REPORT INFORMATION
  Report Type: Spontaneous
  Country: US (occurrence: US)
  Receive Date: 20131004
  Receipt Date: 20131004
  Transmission Date: 20140711
  Serious: No
  Sender: FDA-Public Use
  Company Number: US-AMGEN-USASP2013021669

PATIENT
  Age: 61 Year
  Sex: Male

DRUGS (10)
  1. ENBREL [Suspect]
     Indication: PRODUCT USED FOR UNKNOWN INDICATION
     Dosage: 50 MG, 2 TIMES/WK
     Route: 058
  2. HUMIRA [Concomitant]
     Indication: PSORIASIS
     Dosage: UNK
  3. CALCIUM [Concomitant]
     Dosage: 500 UNK, UNK
  4. MULTIVITAMINS, PLAIN [Concomitant]
     Dosage: UNK
  5. FLUTICASONE                        /00972202/ [Concomitant]
     Dosage: SPR, 50 MUG, UNK
  6. DOVONEX [Concomitant]
     Dosage: 0.005 %, UNK
  7. VITAMIN C                          /00008001/ [Concomitant]
     Dosage: 500 MG, UNK
  8. ASPIRIN [Concomitant]
     Dosage: 81 MG, UNK
  9. FIBER [Concomitant]
     Dosage: UNK
  10. CLOBETASOL 0.05% [Concomitant]
     Dosage: 0.05 %, UNK

REACTIONS (1)
  - Drug ineffective [Unknown]
